FAERS Safety Report 6018815-5 (Version None)
Quarter: 2008Q4

REPORT INFORMATION
  Report Type: 
  Country: None (occurrence: None)
  Receive Date: 20081223
  Receipt Date: 20081211
  Transmission Date: 20090506
  Serious: Yes (Other)
  Sender: FDA-Public Use
  Company Number: IN-ELI LILLY & COMPANY-US_0407104035

PATIENT
  Age: 30 Year
  Sex: Male

DRUGS (4)
  1. ZYPREXA [Suspect]
     Indication: BIPOLAR DISORDER
     Dosage: 5 MG, DAILY (1/D)
     Route: 048
  2. LITHIUM CARBONATE [Interacting]
     Indication: BIPOLAR DISORDER
     Dosage: 1200 MG, DAILY (1/D)
  3. HALOPERIDOL [Concomitant]
     Indication: BIPOLAR DISORDER
     Dosage: 15 MG, DAILY (1/D)
  4. TRIHEXYPHENIDYL [Concomitant]
     Indication: AKATHISIA
     Dosage: 4 MG, DAILY (1/D)

REACTIONS (3)
  - DRUG INTERACTION [None]
  - ERECTILE DYSFUNCTION [None]
  - PRIAPISM [None]
